FAERS Safety Report 9844379 (Version 1)
Quarter: 2014Q1

REPORT INFORMATION
  Report Type: Spontaneous
  Country: US (occurrence: None)
  Receive Date: 20140123
  Receipt Date: 20140123
  Transmission Date: 20141002
  Serious: Yes (Disabling, Other)
  Sender: FDA-Public Use
  Company Number: None

PATIENT
  Age: 26 Year
  Sex: Male
  Weight: 48.99 kg

DRUGS (2)
  1. AZITHROMYCIN [Suspect]
     Indication: NASOPHARYNGITIS
     Dosage: 2 TABLETS FOR FIRST DOSE   1 TABLET FOR 4 DAY  TAKEN BY MOUTH
     Route: 048
     Dates: start: 20131203, end: 20131206
  2. AZITHROMYCIN [Suspect]
     Indication: COUGH
     Dosage: 2 TABLETS FOR FIRST DOSE   1 TABLET FOR 4 DAY  TAKEN BY MOUTH
     Route: 048
     Dates: start: 20131203, end: 20131206

REACTIONS (1)
  - Diarrhoea [None]
